FAERS Safety Report 8228786-9 (Version None)
Quarter: 2012Q1

REPORT INFORMATION
  Report Type: 
  Country: None (occurrence: None)
  Receive Date: 20120322
  Receipt Date: 20120315
  Transmission Date: 20120608
  Serious: Yes (Other)
  Sender: FDA-Public Use
  Company Number: US-GLAXOSMITHKLINE-A0956250A

PATIENT
  Age: 74 Year
  Sex: Female
  Weight: 107.3 kg

DRUGS (2)
  1. AVANDAMET [Suspect]
     Indication: DIABETES MELLITUS
     Route: 048
     Dates: start: 20041101, end: 20070501
  2. AVANDIA [Suspect]
     Indication: DIABETES MELLITUS
     Dosage: 4MG PER DAY
     Route: 048
     Dates: start: 20050601, end: 20100601

REACTIONS (4)
  - CARDIOVASCULAR DISORDER [None]
  - STRESS FRACTURE [None]
  - INJURY [None]
  - CARDIAC FAILURE [None]
